FAERS Safety Report 16409697 (Version 6)
Quarter: 2019Q3

REPORT INFORMATION
  Report Type: Spontaneous
  Country: JP (occurrence: JP)
  Receive Date: 20190610
  Receipt Date: 20190830
  Transmission Date: 20191004
  Serious: Yes (Death, Life-Threatening, Hospitalization, Other)
  Sender: FDA-Public Use
  Company Number: JP-GILEAD-2019-0411547

PATIENT
  Age: 65 Year
  Sex: Male
  Weight: 55 kg

DRUGS (32)
  1. KAYWAN [Concomitant]
     Indication: HEPATIC CIRRHOSIS
     Dosage: 1 DOSAGE FORM, TID
     Route: 048
     Dates: end: 20190601
  2. SENNOSIDES. [Concomitant]
     Active Substance: SENNOSIDES
     Indication: CONSTIPATION
     Dosage: 2 DOSAGE FORM, QHS
     Route: 048
  3. SPIRONOLACTONE. [Concomitant]
     Active Substance: SPIRONOLACTONE
     Indication: OEDEMA DUE TO HEPATIC DISEASE
     Dosage: 2 DOSAGE FORM, QD
     Route: 048
     Dates: end: 20190601
  4. SPIRONOLACTONE. [Concomitant]
     Active Substance: SPIRONOLACTONE
     Indication: PLEURAL EFFUSION
  5. ALBUMIN [Concomitant]
     Active Substance: ALBUMIN HUMAN
     Dosage: 100 ML
     Dates: start: 20190422, end: 20190424
  6. SAMSCA [Concomitant]
     Active Substance: TOLVAPTAN
     Indication: ASCITES
     Dosage: 1 DOSAGE FORM, QD
     Route: 048
     Dates: end: 20190601
  7. AMINOVACT [Concomitant]
     Active Substance: ISOLEUCINE\LEUCINE\VALINE
     Dosage: 4.74 G, TID
     Route: 048
  8. REBAMIPIDE [Concomitant]
     Active Substance: REBAMIPIDE
     Indication: CHRONIC GASTRITIS
     Dosage: 1 DOSAGE FORM, TID
     Route: 048
     Dates: end: 20190601
  9. HALCION [Concomitant]
     Active Substance: TRIAZOLAM
     Indication: INSOMNIA
     Dosage: 0.5 DOSAGE FORM, QHS
     Route: 048
     Dates: end: 20190601
  10. NIFEDIPINE. [Concomitant]
     Active Substance: NIFEDIPINE
     Indication: HYPERTENSION
     Dosage: 1 DOSAGE FORM, QD
     Route: 048
     Dates: end: 20190601
  11. NIFEDIPINE. [Concomitant]
     Active Substance: NIFEDIPINE
     Dosage: 1 DOSAGE FORM, BID
     Route: 048
     Dates: end: 20190601
  12. AMINOLEBAN EN [Concomitant]
     Active Substance: UNSPECIFIED INGREDIENT
     Indication: HEPATIC CIRRHOSIS
     Dosage: 50 G, QHS
     Route: 048
     Dates: end: 20190601
  13. LIVACT [AMINO ACIDS NOS] [Concomitant]
     Indication: HEPATIC CIRRHOSIS
     Dosage: 4.15 G, BID
     Route: 048
     Dates: end: 20190601
  14. LIVACT [AMINO ACIDS NOS] [Concomitant]
     Dosage: 4.15 G, TID
     Route: 048
  15. EPCLUSA [Suspect]
     Active Substance: SOFOSBUVIR\VELPATASVIR
     Indication: HEPATIC CIRRHOSIS
     Dosage: 1 DOSAGE FORM, QD
     Route: 048
     Dates: start: 20190409, end: 20190601
  16. NEXIUM CONTROL [Concomitant]
     Active Substance: ESOMEPRAZOLE MAGNESIUM
     Indication: VARICES OESOPHAGEAL
     Dosage: 1 DOSAGE FORM, QHS
     Route: 048
     Dates: end: 20190601
  17. RIFXIMA [Concomitant]
     Active Substance: RIFAXIMIN
     Dosage: 2 DOSAGE FORM, TID
     Route: 048
  18. URSODEOXYCHOLIC ACID [Concomitant]
     Active Substance: URSODIOL
     Dosage: 2 DOSAGE FORM, TID
     Route: 048
  19. MIYA-BM [Concomitant]
     Active Substance: CLOSTRIDIUM BUTYRICUM SPORES STRAIN M-55
     Dosage: 1 G, TID
     Route: 048
     Dates: end: 20190601
  20. VOGLIBOSE SW [Concomitant]
     Dosage: 1 DOSAGE FORM, TID
     Route: 048
  21. MONTELUKAST [Concomitant]
     Active Substance: MONTELUKAST SODIUM
     Dosage: 1 DOSAGE FORM, QHS
     Route: 048
     Dates: end: 20190601
  22. ALBUMIN [Concomitant]
     Active Substance: ALBUMIN HUMAN
     Dosage: 100 ML
     Dates: start: 20190502, end: 20190502
  23. PORTOLAC [Concomitant]
     Active Substance: LACTITOL
     Indication: HYPERAMMONAEMIA
     Dosage: 6 G, TID
     Route: 048
     Dates: end: 20190601
  24. PORTOLAC [Concomitant]
     Active Substance: LACTITOL
     Dosage: 12 G, TID
     Route: 048
     Dates: start: 201906
  25. SENNOSIDES. [Concomitant]
     Active Substance: SENNOSIDES
     Dosage: 2 DOSAGE FORM, PRN
     Route: 048
     Dates: start: 201905
  26. SAMSCA [Concomitant]
     Active Substance: TOLVAPTAN
     Dosage: UNK
  27. CARTINE [Concomitant]
     Dosage: 2 DOSAGE FORM, TID
     Route: 048
  28. AMINOVACT [Concomitant]
     Active Substance: ISOLEUCINE\LEUCINE\VALINE
     Dosage: 4.74 G, BID
     Dates: start: 201905
  29. EPCLUSA [Suspect]
     Active Substance: SOFOSBUVIR\VELPATASVIR
     Indication: CHRONIC HEPATITIS C
  30. ALLOID G [Concomitant]
     Active Substance: SODIUM ALGINATE
     Dosage: 40 ML, QID
     Route: 048
  31. CALONAL [Concomitant]
     Active Substance: ACETAMINOPHEN
     Dosage: 2 DOSAGE FORM, PRN
     Route: 048
  32. CARTINE [Concomitant]
     Dosage: 5 DOSAGE FORM, TID
     Route: 048

REACTIONS (3)
  - Acute on chronic liver failure [Fatal]
  - Oesophageal varices haemorrhage [Not Recovered/Not Resolved]
  - White blood cell count increased [Unknown]

NARRATIVE: CASE EVENT DATE: 2019
